FAERS Safety Report 4312037-1 (Version None)
Quarter: 2004Q1

REPORT INFORMATION
  Report Type: 
  Country: None (occurrence: None)
  Receive Date: 20040303
  Receipt Date: 20040220
  Transmission Date: 20041129
  Serious: Yes (Hospitalization)
  Sender: FDA-Public Use
  Company Number: 2004200484FI

PATIENT
  Age: 58 Year
  Sex: Female

DRUGS (1)
  1. BEXTRA [Suspect]
     Indication: ORTHOPEDIC PROCEDURE
     Dosage: 40 MG ORAL
     Route: 048
     Dates: start: 20031201, end: 20031201

REACTIONS (2)
  - ACUTE FEBRILE NEUTROPHILIC DERMATOSIS [None]
  - PARESIS [None]
